FAERS Safety Report 24294579 (Version 2)
Quarter: 2024Q3

REPORT INFORMATION
  Report Type: Spontaneous
  Country: US (occurrence: US)
  Receive Date: 20240906
  Receipt Date: 20240923
  Transmission Date: 20241016
  Serious: No
  Sender: SANOFI AVENTIS
  Company Number: US-SANOFI-02200926

PATIENT
  Age: 77 Year
  Sex: Female
  Weight: 98.18 kg

DRUGS (11)
  1. DUPIXENT [Suspect]
     Active Substance: DUPILUMAB
     Indication: Dermatitis atopic
     Dosage: 300 MG, QOW
  2. ACETAMINOPHEN [Concomitant]
     Active Substance: ACETAMINOPHEN
  3. CODEINE SULFATE [Concomitant]
     Active Substance: CODEINE SULFATE
  4. SULFADIAZINE [Concomitant]
     Active Substance: SULFADIAZINE
  5. CODEINE [Concomitant]
     Active Substance: CODEINE
  6. SODIUM SULAMYD [Concomitant]
     Active Substance: SULFACETAMIDE SODIUM
  7. OXYCONTIN [Concomitant]
     Active Substance: OXYCODONE HYDROCHLORIDE
  8. SULFAMETHOXAZOLE [Concomitant]
     Active Substance: SULFAMETHOXAZOLE
  9. NABUMETONE [Concomitant]
     Active Substance: NABUMETONE
  10. OXYCODONE HYDROCHLORIDE [Concomitant]
     Active Substance: OXYCODONE HYDROCHLORIDE
  11. BLEPH-10 [Concomitant]
     Active Substance: SULFACETAMIDE SODIUM

REACTIONS (4)
  - Injection site pain [Unknown]
  - Contusion [Unknown]
  - Accidental exposure to product [Unknown]
  - Exposure via skin contact [Unknown]

NARRATIVE: CASE EVENT DATE: 20240829
